FAERS Safety Report 7941382-3 (Version None)
Quarter: 2011Q4

REPORT INFORMATION
  Report Type: 
  Country: None (occurrence: None)
  Receive Date: 20111122
  Receipt Date: 20111122
  Transmission Date: 20120403
  Serious: No
  Sender: FDA-Public Use
  Company Number: None

PATIENT
  Age: 78 Year
  Sex: Female
  Weight: 68.0396 kg

DRUGS (1)
  1. PROLIA [Suspect]
     Indication: OSTEOPOROSIS
     Dosage: ONE INJECTION ONE ONLY I.M.
     Route: 030
     Dates: start: 20110204

REACTIONS (5)
  - SKIN DISORDER [None]
  - RASH [None]
  - ULCER [None]
  - SCAB [None]
  - PRURITUS [None]
